FAERS Safety Report 9785518 (Version 1)
Quarter: 2013Q4

REPORT INFORMATION
  Report Type: Spontaneous
  Country: CH (occurrence: CH)
  Receive Date: 20131227
  Receipt Date: 20131227
  Transmission Date: 20140711
  Serious: Yes (Hospitalization)
  Sender: FDA-Public Use
  Company Number: CH-BAYER-2013-154741

PATIENT
  Age: 63 Year
  Sex: Male

DRUGS (7)
  1. ASPIRIN [Suspect]
     Indication: PERIPHERAL EMBOLISM
     Dosage: 100 MG, QD
     Route: 048
     Dates: start: 20130927, end: 20131003
  2. ASPIRIN [Suspect]
     Indication: PERIPHERAL ARTERY THROMBOSIS
  3. AUGMENTIN [Suspect]
     Indication: WOUND
     Dosage: 1000 MG, BID
     Route: 048
     Dates: start: 20130927, end: 20130930
  4. IRFEN [Suspect]
     Indication: PAIN
     Dosage: UNK
     Route: 048
     Dates: start: 20130927, end: 20130928
  5. TD-PUR [DIPHTHERIA AND TETANUS VACCINES ] [Suspect]
     Indication: PROPHYLACTIC CHEMOTHERAPY
     Dosage: 0.5 ML, UNK
     Route: 030
     Dates: start: 20130927
  6. RAPIDOCAIN [Suspect]
     Indication: LOCAL ANAESTHESIA
     Route: 058
  7. DAFALGAN [Concomitant]
     Indication: PYREXIA
     Dosage: UNK
     Route: 048
     Dates: start: 20131004

REACTIONS (12)
  - Drug hypersensitivity [Recovered/Resolved]
  - Rash erythematous [Recovered/Resolved]
  - Skin exfoliation [Recovered/Resolved]
  - Dermatitis [Recovered/Resolved]
  - Pyrexia [Recovered/Resolved]
  - Leukocytosis [Unknown]
  - C-reactive protein increased [Unknown]
  - Red blood cell sedimentation rate increased [Unknown]
  - Eosinophilia [Unknown]
  - Anaemia [Unknown]
  - Creatinine renal clearance decreased [Unknown]
  - Albuminuria [Unknown]
